FAERS Safety Report 10790087 (Version 2)
Quarter: 2015Q1

REPORT INFORMATION
  Report Type: Spontaneous
  Country: US (occurrence: US)
  Receive Date: 20150212
  Receipt Date: 20150223
  Transmission Date: 20150721
  Serious: Yes (Hospitalization)
  Sender: FDA-Public Use
  Company Number: US-UNITED THERAPEUTICS-UNT-2015-001272

PATIENT
  Sex: Female

DRUGS (1)
  1. ORENITRAM [Suspect]
     Active Substance: TREPROSTINIL
     Indication: PRODUCT USED FOR UNKNOWN INDICATION
     Dosage: 0.125 MG, BID
     Route: 048
     Dates: start: 20141111

REACTIONS (8)
  - Inflammation [Unknown]
  - Drug ineffective [Unknown]
  - Oedema peripheral [Unknown]
  - Abdominal pain upper [Unknown]
  - Thyroid hormones increased [Unknown]
  - Endometrial hypertrophy [Unknown]
  - Localised oedema [Unknown]
  - Oedema genital [Unknown]

NARRATIVE: CASE EVENT DATE: 201411
